FAERS Safety Report 10207421 (Version 1)
Quarter: 2014Q2

REPORT INFORMATION
  Report Type: Spontaneous
  Country: AU (occurrence: AU)
  Receive Date: 20140530
  Receipt Date: 20140530
  Transmission Date: 20141212
  Serious: Yes (Other)
  Sender: FDA-Public Use
  Company Number: AU-MILLENNIUM PHARMACEUTICALS, INC.-2014JNJ003559

PATIENT
  Sex: 0

DRUGS (6)
  1. VELCADE [Suspect]
     Indication: PRODUCT USED FOR UNKNOWN INDICATION
     Dosage: 1.3 MG/M2, UNK
     Route: 065
  2. CYCLOPHOSPHAMIDE [Concomitant]
     Dosage: 500 MG, UNK
  3. DEXAMETHASONE [Concomitant]
     Dosage: 20 MG, UNK
  4. VALTREX [Concomitant]
  5. RESPRIM [Concomitant]
  6. ZOMETA [Concomitant]
     Dosage: UNK, MONTHLY

REACTIONS (6)
  - Breast cancer [Unknown]
  - Hypoglycaemia [Unknown]
  - Hyperglycaemia [Unknown]
  - Fatigue [Unknown]
  - Nausea [Unknown]
  - Neuropathy peripheral [Unknown]
